FAERS Safety Report 4977213-3 (Version None)
Quarter: 2006Q2

REPORT INFORMATION
  Report Type: 
  Country: None (occurrence: None)
  Receive Date: 20060419
  Receipt Date: 20060320
  Transmission Date: 20061013
  Serious: Yes (Life-Threatening, Hospitalization, Disabling, Other)
  Sender: FDA-Public Use
  Company Number: US-MERCK-0603USA03430

PATIENT
  Age: 59 Year
  Sex: Female
  Weight: 56 kg

DRUGS (1)
  1. VYTORIN [Suspect]
     Route: 048
     Dates: start: 20060101, end: 20060301

REACTIONS (2)
  - HEPATIC ENZYME INCREASED [None]
  - MYOSITIS [None]
